FAERS Safety Report 13660350 (Version 1)
Quarter: 2017Q2

REPORT INFORMATION
  Report Type: Spontaneous
  Country: US (occurrence: US)
  Receive Date: 20170615
  Receipt Date: 20170615
  Transmission Date: 20170830
  Serious: Yes (Hospitalization, Disabling)
  Sender: FDA-Public Use
  Company Number: None

PATIENT
  Age: 68 Year
  Sex: Female
  Weight: 135 kg

DRUGS (9)
  1. VITAMIN B12 [Concomitant]
     Active Substance: CYANOCOBALAMIN
  2. ATENOLOL. [Concomitant]
     Active Substance: ATENOLOL
  3. ATORVASTATIN [Concomitant]
     Active Substance: ATORVASTATIN
  4. MIRENA [Suspect]
     Active Substance: LEVONORGESTREL
     Indication: HAEMORRHAGE
     Dosage: ?          QUANTITY:1 SYSTEM;OTHER FREQUENCY:EVERY 5 YEARS;OTHER ROUTE:INTRAUTERINE?
     Route: 015
  5. LOSARTAN. [Concomitant]
     Active Substance: LOSARTAN
  6. AMLODIPINE [Concomitant]
     Active Substance: AMLODIPINE BESYLATE
  7. COQ12 [Concomitant]
  8. GLYBURIDE. [Concomitant]
     Active Substance: GLYBURIDE
  9. HUMULIN R AND N [Concomitant]

REACTIONS (5)
  - Rash [None]
  - Burning sensation [None]
  - Sensory disturbance [None]
  - Asthenia [None]
  - Visual impairment [None]

NARRATIVE: CASE EVENT DATE: 20120926
